FAERS Safety Report 5286815-9 (Version None)
Quarter: 2007Q2

REPORT INFORMATION
  Report Type: 
  Country: None (occurrence: None)
  Receive Date: 20070404
  Receipt Date: 20070321
  Transmission Date: 20071010
  Serious: Yes (Death, Hospitalization)
  Sender: FDA-Public Use
  Company Number: US-SHR-US-2006-036893

PATIENT
  Age: 44 Year
  Sex: Female

DRUGS (6)
  1. BETASERON [Suspect]
     Indication: MULTIPLE SCLEROSIS
     Dosage: 8 MIU, EVERY 2D
     Route: 058
     Dates: start: 20060726, end: 20061123
  2. CORTICOSTEROID NOS [Concomitant]
     Dates: start: 20060701, end: 20061101
  3. ARICEPT [Concomitant]
  4. BACLOFEN [Concomitant]
     Dosage: 10 UNK, 3X/DAY
  5. DETROL [Concomitant]
  6. ORTHO-NOVUM [Concomitant]

REACTIONS (2)
  - HEPATIC FAILURE [None]
  - SEPSIS SYNDROME [None]
